FAERS Safety Report 6866126-8 (Version None)
Quarter: 2010Q3

REPORT INFORMATION
  Report Type: 
  Country: None (occurrence: None)
  Receive Date: 20100722
  Receipt Date: 20100714
  Transmission Date: 20110219
  Serious: Yes (Other)
  Sender: FDA-Public Use
  Company Number: US-JNJFOC-20100704901

PATIENT
  Sex: Male
  Weight: 86.18 kg

DRUGS (3)
  1. DURAGESIC-100 [Suspect]
     Indication: NEURITIS
     Route: 062
  2. FENTANYL-100 [Suspect]
     Indication: NEURITIS
     Route: 062
  3. ELEVA [Concomitant]
     Indication: NEURITIS
     Route: 048

REACTIONS (3)
  - PAIN [None]
  - PRODUCT QUALITY ISSUE [None]
  - PROSTATOMEGALY [None]
